FAERS Safety Report 12333649 (Version 3)
Quarter: 2017Q4

REPORT INFORMATION
  Report Type: Spontaneous
  Country: US (occurrence: US)
  Receive Date: 20160504
  Receipt Date: 20171027
  Transmission Date: 20180320
  Serious: No
  Sender: FDA-Public Use
  Company Number: US-ROCHE-1655280

PATIENT
  Sex: Female

DRUGS (8)
  1. ESBRIET [Suspect]
     Active Substance: PIRFENIDONE
     Route: 048
  2. TRICOR [Concomitant]
     Active Substance: FENOFIBRATE
  3. DEMADEX [Concomitant]
     Active Substance: TORSEMIDE
  4. SYNTHROID [Concomitant]
     Active Substance: LEVOTHYROXINE SODIUM
  5. TRICOR [Concomitant]
     Active Substance: FENOFIBRATE
  6. ESBRIET [Suspect]
     Active Substance: PIRFENIDONE
     Indication: IDIOPATHIC PULMONARY FIBROSIS
     Route: 048
     Dates: start: 20150821
  7. LOPRESSOR [Concomitant]
     Active Substance: METOPROLOL TARTRATE
  8. BABY ASPIRIN [Concomitant]
     Active Substance: ASPIRIN

REACTIONS (4)
  - Blood potassium decreased [Unknown]
  - Blood electrolytes decreased [Unknown]
  - Hepatic enzyme increased [Unknown]
  - Diarrhoea [Unknown]
